FAERS Safety Report 16847271 (Version 1)
Quarter: 2019Q3

REPORT INFORMATION
  Report Type: Report from Study
  Country: US (occurrence: US)
  Receive Date: 20190924
  Receipt Date: 20190924
  Transmission Date: 20191005
  Serious: Yes (Disabling, Other)
  Sender: FDA-Public Use
  Company Number: US-ACTELION-A-NJ2019-193217

PATIENT
  Age: 75 Year
  Sex: Female

DRUGS (14)
  1. FUROSEMIDE. [Concomitant]
     Active Substance: FUROSEMIDE
     Dosage: 20 MG, BID
     Dates: start: 201712, end: 201902
  2. MINERALS NOS [Concomitant]
     Active Substance: MINERALS
     Dosage: 2 DROPS DAILY IN MORNING SMOOTHIE
  3. PROPRANOLOL [Concomitant]
     Active Substance: PROPRANOLOL HYDROCHLORIDE
     Dosage: 20 MG, BID
     Dates: start: 201903, end: 201904
  4. VITAMIN C [Concomitant]
     Active Substance: ASCORBIC ACID
     Dosage: UNK, PRN
  5. PROPRANOLOL [Concomitant]
     Active Substance: PROPRANOLOL HYDROCHLORIDE
     Dosage: 20 MG, QD
     Dates: start: 201904
  6. IRON [Concomitant]
     Active Substance: IRON
     Dosage: UNK, PRN
  7. FUROSEMIDE. [Concomitant]
     Active Substance: FUROSEMIDE
     Dosage: 20 MG, QD
     Dates: start: 201902
  8. OMEPRAZOLE. [Concomitant]
     Active Substance: OMEPRAZOLE
     Dosage: 20 MG, QD
     Dates: start: 201803
  9. GLUTATHIONE [Concomitant]
     Active Substance: GLUTATHIONE
     Dosage: 3 CAPS DAILY
     Dates: start: 2019
  10. VITAMINS NOS [Concomitant]
     Active Substance: VITAMINS
     Dosage: 2 DROPS DAILY IN MORNING SMOOTHIE
  11. OPSUMIT [Suspect]
     Active Substance: MACITENTAN
     Indication: PULMONARY HYPERTENSION
     Dosage: 10 MG, QD
     Route: 048
     Dates: start: 20190628, end: 20190805
  12. ZINC. [Concomitant]
     Active Substance: ZINC
     Dosage: UNK, PRN
  13. TURMERIC [Concomitant]
     Active Substance: HERBALS\TURMERIC
     Dosage: 2X DAILY
     Dates: start: 2019
  14. IODINE. [Concomitant]
     Active Substance: IODINE
     Dosage: 2 DROPS DAILY IN MORNING SMOOTHIE

REACTIONS (17)
  - Unevaluable event [Recovering/Resolving]
  - Oropharyngeal pain [Recovering/Resolving]
  - Dyspnoea [Not Recovered/Not Resolved]
  - Lymphadenopathy [Recovered/Resolved]
  - Pain [Recovering/Resolving]
  - Abnormal weight gain [Recovering/Resolving]
  - Blood iron decreased [Unknown]
  - Sinusitis [Recovering/Resolving]
  - Headache [Recovered/Resolved]
  - Nausea [Recovered/Resolved]
  - Oxygen saturation decreased [Not Recovered/Not Resolved]
  - Anaemia [Recovering/Resolving]
  - Poor quality sleep [Recovering/Resolving]
  - Influenza like illness [Recovering/Resolving]
  - Pulmonary oedema [Recovered/Resolved]
  - Condition aggravated [Not Recovered/Not Resolved]
  - Oxygen consumption increased [Not Recovered/Not Resolved]

NARRATIVE: CASE EVENT DATE: 201906
